FAERS Safety Report 8267836-0 (Version None)
Quarter: 2012Q2

REPORT INFORMATION
  Report Type: 
  Country: None (occurrence: None)
  Receive Date: 20120405
  Receipt Date: 20120405
  Transmission Date: 20120825
  Serious: Yes (Hospitalization)
  Sender: FDA-Public Use
  Company Number: None

PATIENT
  Age: 87 Year
  Sex: Female
  Weight: 73.4 kg

DRUGS (7)
  1. HYZAAR [Concomitant]
  2. SENOKOT [Concomitant]
  3. LEVOTHYROXINE SODIUM [Concomitant]
  4. NAPROXEN [Concomitant]
  5. IBUPROFEN [Concomitant]
  6. NERCO [Concomitant]
  7. COUMADIN [Suspect]
     Indication: ARTHROPATHY
     Dosage: 2.5 MG DAILY PO RECENT
     Route: 048

REACTIONS (3)
  - HYPOTENSION [None]
  - DIVERTICULUM INTESTINAL HAEMORRHAGIC [None]
  - LOWER GASTROINTESTINAL HAEMORRHAGE [None]
